FAERS Safety Report 5825929-9 (Version None)
Quarter: 2008Q3

REPORT INFORMATION
  Report Type: 
  Country: None (occurrence: None)
  Receive Date: 20080729
  Receipt Date: 20080722
  Transmission Date: 20090109
  Serious: Yes (Other)
  Sender: FDA-Public Use
  Company Number: PHEH2008US06624

PATIENT
  Sex: Male

DRUGS (4)
  1. TRILEPTAL [Suspect]
     Indication: CONVULSION
     Dosage: 300 MG, UNK
     Route: 048
  2. TRILEPTAL [Suspect]
     Dosage: 600 MG, BID
  3. LAMICTAL [Suspect]
     Indication: CONVULSION
     Dosage: 175 MG, UNK
     Route: 048
  4. CLONAZEPAM [Suspect]
     Indication: CONVULSION
     Dosage: 2 TABLETS DAILY
     Route: 048
     Dates: start: 20080309

REACTIONS (9)
  - AURA [None]
  - CONDITION AGGRAVATED [None]
  - CONVULSION [None]
  - DRUG EFFECT DECREASED [None]
  - DYSKINESIA [None]
  - ERYTHEMA [None]
  - FLASHBACK [None]
  - MYDRIASIS [None]
  - PSYCHOTIC DISORDER [None]
